FAERS Safety Report 24631551 (Version 1)
Quarter: 2024Q4

REPORT INFORMATION
  Report Type: Spontaneous
  Country: US (occurrence: US)
  Receive Date: 20241118
  Receipt Date: 20241118
  Transmission Date: 20250114
  Serious: Yes (Hospitalization)
  Sender: MYLAN
  Company Number: US-MYLANLABS-2024M1102723

PATIENT
  Age: 32 Year
  Sex: Male

DRUGS (1)
  1. DEXAMETHASONE [Suspect]
     Active Substance: DEXAMETHASONE
     Indication: Metastatic malignant melanoma
     Dosage: 4 MILLIGRAM, QID, 4 TIMES DAILY
     Route: 065

REACTIONS (1)
  - Drug ineffective [Unknown]
